FAERS Safety Report 10917876 (Version 1)
Quarter: 2015Q1

REPORT INFORMATION
  Report Type: Spontaneous
  Country: JP (occurrence: JP)
  Receive Date: 20150316
  Receipt Date: 20150316
  Transmission Date: 20150721
  Serious: Yes (Hospitalization, Other)
  Sender: FDA-Public Use
  Company Number: JP-PFIZER INC-2015086949

PATIENT
  Age: 77 Year
  Sex: Female

DRUGS (1)
  1. LYRICA [Suspect]
     Active Substance: PREGABALIN
     Dosage: 250 MG, DAILY
     Route: 048

REACTIONS (3)
  - Anaemia [Unknown]
  - Gastrointestinal haemorrhage [Unknown]
  - Creatinine renal clearance decreased [Unknown]

NARRATIVE: CASE EVENT DATE: 201503
